FAERS Safety Report 14491301 (Version 9)
Quarter: 2018Q2

REPORT INFORMATION
  Report Type: Spontaneous
  Country: DE (occurrence: DE)
  Receive Date: 20180206
  Receipt Date: 20180523
  Transmission Date: 20180711
  Serious: Yes (Life-Threatening, Hospitalization, Other)
  Sender: FDA-Public Use
  Company Number: PHHY2017DE199983

PATIENT
  Age: 48 Year
  Sex: Male

DRUGS (3)
  1. IBUPROFEN. [Suspect]
     Active Substance: IBUPROFEN
     Indication: PAIN
     Dosage: 2400 MG, QD
     Route: 048
  2. IBUPROFEN. [Suspect]
     Active Substance: IBUPROFEN
     Dosage: 72000 MG (90 UG/LITRE)
     Route: 048
  3. IBUPROFEN. [Suspect]
     Active Substance: IBUPROFEN
     Dosage: 800 MG, TID
     Route: 048

REACTIONS (13)
  - Hypotension [Recovered/Resolved]
  - Suicide attempt [Recovering/Resolving]
  - Metabolic acidosis [Unknown]
  - Intentional overdose [Recovered/Resolved]
  - Dehydration [Recovering/Resolving]
  - Somnolence [Recovered/Resolved]
  - Cardiovascular insufficiency [Unknown]
  - Tachycardia [Unknown]
  - Acute kidney injury [Recovered/Resolved]
  - Product prescribing issue [Unknown]
  - Circulatory collapse [Recovered/Resolved]
  - Toxicity to various agents [Recovered/Resolved]
  - Coma scale abnormal [Unknown]
